FAERS Safety Report 8598034-9 (Version None)
Quarter: 2012Q3

REPORT INFORMATION
  Report Type: 
  Country: None (occurrence: None)
  Receive Date: 20120816
  Receipt Date: 20120813
  Transmission Date: 20120928
  Serious: Yes (Other)
  Sender: FDA-Public Use
  Company Number: DE-SANOFI-AVENTIS-2012SA047590

PATIENT
  Age: 76 Year
  Sex: Female

DRUGS (4)
  1. RILUTEK [Suspect]
     Route: 048
     Dates: start: 20110901, end: 20120301
  2. RILUTEK [Suspect]
     Route: 048
     Dates: start: 20120301
  3. RILUTEK [Suspect]
     Indication: AMYOTROPHIC LATERAL SCLEROSIS
     Route: 048
     Dates: start: 20110901, end: 20120301
  4. RILUTEK [Suspect]
     Route: 048
     Dates: start: 20120301

REACTIONS (1)
  - MELAENA [None]
